FAERS Safety Report 6643378-0 (Version None)
Quarter: 2010Q1

REPORT INFORMATION
  Report Type: 
  Country: None (occurrence: None)
  Receive Date: 20100319
  Receipt Date: 20100308
  Transmission Date: 20100710
  Serious: Yes (Other)
  Sender: FDA-Public Use
  Company Number: US-ELI_LILLY_AND_COMPANY-US201002005184

PATIENT
  Sex: Male

DRUGS (6)
  1. ZYPREXA [Suspect]
     Indication: SCHIZOPHRENIA
     Dosage: 15 MG, EACH EVENING
  2. HALDOL [Concomitant]
     Dosage: UNK, EACH EVENING
  3. TRICOR [Concomitant]
     Dosage: 160 MG, DAILY (1/D)
  4. BENAZEPRIL HYDROCHLORIDE [Concomitant]
     Dosage: 40 MG, DAILY (1/D)
  5. AMANTADINE HCL [Concomitant]
     Dosage: 100 MG, EACH EVENING
  6. INDAPAMIDE [Concomitant]
     Dosage: 1.25 MG, EACH MORNING

REACTIONS (4)
  - DEHYDRATION [None]
  - LUNG CANCER METASTATIC [None]
  - LUNG NEOPLASM MALIGNANT [None]
  - RENAL CELL CARCINOMA [None]
